FAERS Safety Report 21064631 (Version 1)
Quarter: 2022Q3

REPORT INFORMATION
  Report Type: Spontaneous
  Country: US (occurrence: None)
  Receive Date: 20220709
  Receipt Date: 20220709
  Transmission Date: 20221026
  Serious: Yes (Hospitalization)
  Sender: FDA-Public Use
  Company Number: None

PATIENT
  Age: 56 Year
  Sex: Male
  Weight: 100.2 kg

DRUGS (1)
  1. CISPLATIN [Suspect]
     Active Substance: CISPLATIN
     Dates: end: 20220523

REACTIONS (4)
  - Gallbladder enlargement [None]
  - Murphy^s sign positive [None]
  - Hyperaemia [None]
  - Cholelithiasis [None]

NARRATIVE: CASE EVENT DATE: 20220531
